FAERS Safety Report 14595353 (Version 1)
Quarter: 2018Q1

REPORT INFORMATION
  Report Type: Spontaneous
  Country: HK (occurrence: HK)
  Receive Date: 20180302
  Receipt Date: 20180302
  Transmission Date: 20180509
  Serious: Yes (Life-Threatening)
  Sender: FDA-Public Use
  Company Number: HK-FRESENIUS KABI-FK201802462

PATIENT
  Age: 55 Year
  Sex: Female

DRUGS (2)
  1. HEPARIN (MANUFACTURER UNKNOWN) [Suspect]
     Active Substance: HEPARIN SODIUM
     Indication: EXTRACORPOREAL MEMBRANE OXYGENATION
     Route: 065
  2. HEPARIN (MANUFACTURER UNKNOWN) [Suspect]
     Active Substance: HEPARIN SODIUM
     Indication: EXTRACORPOREAL MEMBRANE OXYGENATION

REACTIONS (1)
  - Abdominal wall haematoma [Unknown]
